FAERS Safety Report 8993818 (Version 1)
Quarter: 2013Q1

REPORT INFORMATION
  Report Type: Spontaneous
  Country: US (occurrence: US)
  Receive Date: 20130102
  Receipt Date: 20130102
  Transmission Date: 20140127
  Serious: No
  Sender: FDA-Public Use
  Company Number: US-AMGEN-USASP2012083454

PATIENT
  Age: 57 None
  Sex: Female

DRUGS (2)
  1. ENBREL [Suspect]
     Indication: RHEUMATOID ARTHRITIS
     Dosage: 25 MG, BIWEEKLY, UNK
     Dates: start: 19990101, end: 201211
  2. METHOTREXATE [Concomitant]
     Dosage: UNK

REACTIONS (6)
  - Arthropathy [Not Recovered/Not Resolved]
  - Condition aggravated [Not Recovered/Not Resolved]
  - Mobility decreased [Not Recovered/Not Resolved]
  - Lung disorder [Recovered/Resolved]
  - Herpes zoster [Recovered/Resolved]
  - Injection site pain [Recovered/Resolved]
